FAERS Safety Report 20811715 (Version 1)
Quarter: 2022Q2

REPORT INFORMATION
  Report Type: Spontaneous
  Country: None (occurrence: CN)
  Receive Date: 20220511
  Receipt Date: 20220511
  Transmission Date: 20220721
  Serious: Yes (Hospitalization)
  Sender: FDA-Public Use
  Company Number: CN-Jiangsu Hengrui Medicine Co., Ltd.-2128655

PATIENT
  Sex: Male
  Weight: 60 kg

DRUGS (5)
  1. IRINOTECAN HYDROCHLORIDE [Suspect]
     Active Substance: IRINOTECAN HYDROCHLORIDE
     Indication: Colon cancer
     Route: 041
     Dates: start: 20220402, end: 20220402
  2. CAMRELIZUMAB [Suspect]
     Active Substance: CAMRELIZUMAB
     Route: 041
     Dates: start: 20220402, end: 20220402
  3. FLUOROURACIL [Suspect]
     Active Substance: FLUOROURACIL
     Route: 041
     Dates: start: 20220402, end: 20220402
  4. LEUCOVORIN CALCIUM [Suspect]
     Active Substance: LEUCOVORIN CALCIUM
     Route: 041
     Dates: start: 20220402, end: 20220402
  5. BEVACIZUMAB [Suspect]
     Active Substance: BEVACIZUMAB
     Route: 041
     Dates: start: 20220402, end: 20220402

REACTIONS (1)
  - Lower gastrointestinal haemorrhage [Recovering/Resolving]
